FAERS Safety Report 5215929-4 (Version None)
Quarter: 2007Q1

REPORT INFORMATION
  Report Type: 
  Country: None (occurrence: None)
  Receive Date: 20070123
  Receipt Date: 20070112
  Transmission Date: 20070707
  Serious: Yes (Hospitalization, Other)
  Sender: FDA-Public Use
  Company Number: US-ELI_LILLY_AND_COMPANY-US200602003867

PATIENT
  Age: 87 Year
  Sex: Female

DRUGS (2)
  1. FORTEO [Suspect]
     Indication: OSTEOPOROSIS
     Dates: start: 20050401
  2. FARESTON ^SCHERING-PLOUGH^ [Concomitant]
     Indication: NEOPLASM MALIGNANT

REACTIONS (2)
  - BREAST CANCER METASTATIC [None]
  - SPINAL COMPRESSION FRACTURE [None]
